FAERS Safety Report 6125408-8 (Version None)
Quarter: 2009Q1

REPORT INFORMATION
  Report Type: 
  Country: None (occurrence: None)
  Receive Date: 20090320
  Receipt Date: 20090313
  Transmission Date: 20090719
  Serious: Yes (Hospitalization)
  Sender: FDA-Public Use
  Company Number: IT-BAYER-200913022GPV

PATIENT
  Age: 18 Year
  Sex: Male

DRUGS (2)
  1. ULTRAVIST (PHARMACY BULK) [Suspect]
     Indication: ANGIOGRAM
     Dosage: TOTAL DAILY DOSE: 80 ML
     Route: 042
     Dates: start: 20090126, end: 20090126
  2. CORTISONE [Concomitant]
     Dosage: TOTAL DAILY DOSE: 25 MG
     Route: 048

REACTIONS (7)
  - COLITIS ISCHAEMIC [None]
  - CYANOSIS [None]
  - DIARRHOEA HAEMORRHAGIC [None]
  - DYSPNOEA [None]
  - FAECAL INCONTINENCE [None]
  - HYPOTENSION [None]
  - URINARY INCONTINENCE [None]
